FAERS Safety Report 23636125 (Version 1)
Quarter: 2024Q1

REPORT INFORMATION
  Report Type: Spontaneous
  Country: US (occurrence: US)
  Receive Date: 20240315
  Receipt Date: 20240315
  Transmission Date: 20240410
  Serious: No
  Sender: FDA-Public Use
  Company Number: US-ABBVIE-5679813

PATIENT
  Age: 53 Year
  Sex: Female

DRUGS (1)
  1. ARMOUR THYROID [Suspect]
     Active Substance: THYROID, PORCINE
     Indication: Thyroid disorder
     Dosage: FORM STRENGTH: 180 MILLIGRAM
     Route: 048

REACTIONS (5)
  - Eye swelling [Unknown]
  - Drug ineffective [Unknown]
  - Lethargy [Unknown]
  - Disturbance in attention [Unknown]
  - Hypothyroidism [Unknown]

NARRATIVE: CASE EVENT DATE: 20240201
